FAERS Safety Report 9290789 (Version 2)
Quarter: 2013Q2

REPORT INFORMATION
  Report Type: Spontaneous
  Country: DE (occurrence: DE)
  Receive Date: 20130515
  Receipt Date: 20130606
  Transmission Date: 20140414
  Serious: Yes (Hospitalization)
  Sender: FDA-Public Use
  Company Number: DE-JNJFOC-20130506854

PATIENT
  Age: 74 Year
  Sex: Female
  Weight: 82 kg

DRUGS (9)
  1. XARELTO [Suspect]
     Indication: ATRIAL FIBRILLATION
     Route: 048
     Dates: start: 20130421, end: 20130423
  2. XARELTO [Suspect]
     Indication: ATRIAL FIBRILLATION
     Route: 048
     Dates: start: 20130409, end: 20130417
  3. XARELTO [Suspect]
     Indication: CEREBROVASCULAR ACCIDENT PROPHYLAXIS
     Route: 048
     Dates: start: 20130409, end: 20130417
  4. XARELTO [Suspect]
     Indication: CEREBROVASCULAR ACCIDENT PROPHYLAXIS
     Route: 048
     Dates: start: 20130421, end: 20130423
  5. HEPARIN [Suspect]
     Indication: HIP ARTHROPLASTY
     Route: 065
     Dates: start: 20130307, end: 20130401
  6. FALITHROM [Suspect]
     Indication: ATRIAL FIBRILLATION
     Route: 065
     Dates: start: 20130401, end: 20130402
  7. FALITHROM [Suspect]
     Indication: ATRIAL FIBRILLATION
     Route: 065
     Dates: start: 20130403, end: 20130408
  8. FALITHROM [Suspect]
     Indication: ATRIAL FIBRILLATION
     Route: 065
     Dates: end: 20130306
  9. DRONEDARONE [Concomitant]
     Indication: ATRIAL FIBRILLATION
     Route: 065

REACTIONS (3)
  - Hypocoagulable state [Unknown]
  - Gingival bleeding [Recovered/Resolved]
  - Drug level increased [Unknown]
